FAERS Safety Report 8445843 (Version 2)
Quarter: 2018Q2

REPORT INFORMATION
  Report Type: Spontaneous
  Country: US (occurrence: US)
  Receive Date: 20120307
  Receipt Date: 20180528
  Transmission Date: 20180711
  Serious: No
  Sender: FDA-Public Use
  Company Number: US-ASTRAZENECA-2011SE75474

PATIENT
  Age: 50 Year
  Sex: Female

DRUGS (1)
  1. ZOMIG [Suspect]
     Active Substance: ZOLMITRIPTAN
     Indication: MIGRAINE
     Dosage: 2.5 MG AT ONSET OF MIGRAINE
     Route: 048

REACTIONS (2)
  - Wrong patient received medication [Unknown]
  - Intervertebral disc degeneration [Unknown]
